FAERS Safety Report 7770149-4 (Version None)
Quarter: 2011Q3

REPORT INFORMATION
  Report Type: 
  Country: None (occurrence: None)
  Receive Date: 20110922
  Receipt Date: 20110428
  Transmission Date: 20111222
  Serious: No
  Sender: FDA-Public Use
  Company Number: US-ASTRAZENECA-2011SE24447

PATIENT
  Age: 46 Year
  Sex: Male
  Weight: 72.6 kg

DRUGS (3)
  1. SEROQUEL XR [Suspect]
     Route: 048
     Dates: start: 20110502
  2. SYNTHROID [Concomitant]
  3. SEROQUEL XR [Suspect]
     Indication: ABNORMAL BEHAVIOUR
     Route: 048
     Dates: start: 20110401, end: 20110502

REACTIONS (5)
  - CONFUSIONAL STATE [None]
  - ABDOMINAL PAIN UPPER [None]
  - EYE PAIN [None]
  - HYPERHIDROSIS [None]
  - COLD SWEAT [None]
